FAERS Safety Report 4433270-4 (Version None)
Quarter: 2004Q3

REPORT INFORMATION
  Report Type: 
  Country: None (occurrence: None)
  Receive Date: 20040824
  Receipt Date: 20040809
  Transmission Date: 20050211
  Serious: Yes (Death)
  Sender: FDA-Public Use
  Company Number: 04P-163-0263669-00

PATIENT
  Age: 73 Year
  Sex: Male

DRUGS (9)
  1. HUMIRA [Suspect]
     Indication: RHEUMATOID ARTHRITIS
     Dosage: 40 MG, 1 IN 2 WK, SUBCUTANEOUS
     Route: 058
     Dates: start: 20030801, end: 20040505
  2. AMIODARONE [Concomitant]
  3. ZOCOR [Concomitant]
  4. GLIPIZIDE [Concomitant]
  5. BENAZEPRIL HCL [Concomitant]
  6. PREDNISONE [Concomitant]
  7. ISOSORBID MONITRATE [Concomitant]
  8. FUROSEMIDE [Concomitant]
  9. MORPHINE SULFATE [Concomitant]

REACTIONS (4)
  - ACUTE CORONARY SYNDROME [None]
  - CARDIO-RESPIRATORY ARREST [None]
  - MYOCARDIAL INFARCTION [None]
  - MYOCARDIAL ISCHAEMIA [None]
